FAERS Safety Report 17835626 (Version 1)
Quarter: 2020Q2

REPORT INFORMATION
  Report Type: Spontaneous
  Country: US (occurrence: US)
  Receive Date: 20200528
  Receipt Date: 20200528
  Transmission Date: 20200714
  Serious: Yes (Other)
  Sender: FDA-Public Use
  Company Number: US-PFIZER INC-2020207685

PATIENT
  Age: 52 Year
  Sex: Female

DRUGS (3)
  1. BUPIVACAINE HCL [Suspect]
     Active Substance: BUPIVACAINE HYDROCHLORIDE
     Dosage: UNK (INFUSED AT A RATE OF 8 ML/HR)
  2. BUPIVACAINE HCL [Suspect]
     Active Substance: BUPIVACAINE HYDROCHLORIDE
     Dosage: 0.1 % (RECEIVED BUPIVACAINE 0.1% BY INFUSION, BY THE SIXTH HOSPITAL DAY)
  3. FENTANYL CITRATE. [Suspect]
     Active Substance: FENTANYL CITRATE
     Dosage: 5 UG/ML (INFUSED AT A RATE OF 8 ML/HR)

REACTIONS (1)
  - Extradural haematoma [Not Recovered/Not Resolved]
